FAERS Safety Report 7083948-1 (Version None)
Quarter: 2010Q4

REPORT INFORMATION
  Report Type: 
  Country: None (occurrence: None)
  Receive Date: 20101104
  Receipt Date: 20100216
  Transmission Date: 20110411
  Serious: No
  Sender: FDA-Public Use
  Company Number: US-ABBOTT-10P-163-0628097-00

PATIENT
  Sex: Female
  Weight: 54.48 kg

DRUGS (9)
  1. KALETRA [Suspect]
     Indication: HIV INFECTION
     Dates: start: 20080408, end: 20080508
  2. ISENTRESS [Suspect]
     Indication: HIV INFECTION
     Dates: start: 20080408, end: 20080508
  3. ISENTRESS [Suspect]
  4. REYATAZ [Suspect]
     Indication: HIV INFECTION
     Dates: start: 20080408, end: 20080508
  5. EPZICOM [Suspect]
     Indication: HIV INFECTION
     Dates: start: 20080408, end: 20080508
  6. EPZICOM [Suspect]
  7. INTELENCE [Suspect]
     Indication: HIV INFECTION
     Dates: start: 20080408, end: 20080508
  8. INTELENCE [Suspect]
  9. NORVIR [Suspect]
     Indication: HIV INFECTION
     Dates: start: 20080408, end: 20080508

REACTIONS (1)
  - URTICARIA [None]
